FAERS Safety Report 17493778 (Version 2)
Quarter: 2020Q2

REPORT INFORMATION
  Report Type: Spontaneous
  Country: US (occurrence: US)
  Receive Date: 20200304
  Receipt Date: 20200529
  Transmission Date: 20200713
  Serious: Yes (Other)
  Sender: FDA-Public Use
  Company Number: US-EYEPOINT PHARMACEUTICALS, INC.-US-EYP-20-00002

PATIENT
  Age: 59 Year
  Sex: Female

DRUGS (1)
  1. DEXYCU [Suspect]
     Active Substance: DEXAMETHASONE
     Indication: POST PROCEDURAL INFLAMMATION
     Route: 031
     Dates: start: 20191223, end: 20191223

REACTIONS (3)
  - Overdose [Recovering/Resolving]
  - Device dislocation [Recovering/Resolving]
  - Pupillary deformity [Recovering/Resolving]

NARRATIVE: CASE EVENT DATE: 20191230
